FAERS Safety Report 4498566-9 (Version None)
Quarter: 2004Q4

REPORT INFORMATION
  Report Type: 
  Country: None (occurrence: None)
  Receive Date: 20041108
  Receipt Date: 20041101
  Transmission Date: 20050328
  Serious: Yes (Hospitalization)
  Sender: FDA-Public Use
  Company Number: 220043K04USA

PATIENT
  Age: 14 Year
  Sex: Female
  Weight: 32.0239 kg

DRUGS (4)
  1. SAIZEN [Suspect]
     Indication: GROWTH HORMONE DEFICIENCY
     Dosage: SEE IMAGE
     Route: 058
     Dates: start: 20040910, end: 20040915
  2. SAIZEN [Suspect]
     Indication: GROWTH HORMONE DEFICIENCY
     Dosage: SEE IMAGE
     Route: 058
     Dates: start: 20040918
  3. STEROIDS [Concomitant]
  4. THYROID MEDICATION [Concomitant]

REACTIONS (11)
  - BLOOD PRESSURE DECREASED [None]
  - CONVULSION [None]
  - CRYING [None]
  - FEELING ABNORMAL [None]
  - GASTROENTERITIS [None]
  - HEADACHE [None]
  - HEART RATE DECREASED [None]
  - INFLUENZA [None]
  - IRRITABILITY [None]
  - NERVOUSNESS [None]
  - SLUGGISHNESS [None]
